FAERS Safety Report 7659979-7 (Version None)
Quarter: 2011Q3

REPORT INFORMATION
  Report Type: 
  Country: None (occurrence: None)
  Receive Date: 20110805
  Receipt Date: 20110726
  Transmission Date: 20111222
  Serious: Yes (Other)
  Sender: FDA-Public Use
  Company Number: US-BRISTOL-MYERS SQUIBB COMPANY-15928328

PATIENT
  Age: 69 Year
  Sex: Male
  Weight: 64 kg

DRUGS (4)
  1. COUMADIN [Suspect]
     Indication: COAGULOPATHY
  2. COMBIVENT [Concomitant]
     Dosage: INHALER
  3. CHANTIX [Suspect]
     Indication: SMOKING CESSATION THERAPY
     Dosage: FILM COATED TABLET
     Route: 048
     Dates: start: 20061001, end: 20061101
  4. SIMVASTATIN [Concomitant]

REACTIONS (4)
  - BLOOD PRESSURE ABNORMAL [None]
  - NAUSEA [None]
  - PLASMA VISCOSITY ABNORMAL [None]
  - CHRONIC OBSTRUCTIVE PULMONARY DISEASE [None]
